FAERS Safety Report 8258928-0 (Version None)
Quarter: 2012Q2

REPORT INFORMATION
  Report Type: 
  Country: None (occurrence: None)
  Receive Date: 20120404
  Receipt Date: 20120311
  Transmission Date: 20120825
  Serious: No
  Sender: FDA-Public Use
  Company Number: US-BAYER-2012-025599

PATIENT
  Age: 82 Year
  Sex: Female
  Weight: 90.703 kg

DRUGS (5)
  1. PACERONE [Concomitant]
  2. PRAVASTATIN SODIUM [Concomitant]
  3. CILOSTAZOL [Concomitant]
  4. WARFARIN SODIUM [Concomitant]
  5. DOMEBORO [Suspect]
     Indication: TINEA PEDIS
     Dosage: 1 DF, UNK
     Route: 061
     Dates: start: 20111101

REACTIONS (1)
  - THERAPEUTIC RESPONSE UNEXPECTED [None]
